FAERS Safety Report 19592201 (Version 6)
Quarter: 2021Q4

REPORT INFORMATION
  Report Type: Spontaneous
  Country: US (occurrence: US)
  Receive Date: 20210722
  Receipt Date: 20211029
  Transmission Date: 20220303
  Serious: Yes (Disabling)
  Sender: FDA-Public Use
  Company Number: US-CELGENE-USA-20210703007

PATIENT
  Sex: Female

DRUGS (1)
  1. ZEPOSIA [Suspect]
     Active Substance: OZANIMOD HYDROCHLORIDE
     Indication: Multiple sclerosis
     Dosage: .92 MILLIGRAM
     Route: 048
     Dates: start: 20210420

REACTIONS (7)
  - Progressive multiple sclerosis [Not Recovered/Not Resolved]
  - Neuropathy peripheral [Recovering/Resolving]
  - Arthritis [Recovering/Resolving]
  - Musculoskeletal pain [Recovering/Resolving]
  - Gastrooesophageal reflux disease [Recovered/Resolved]
  - Peripheral vascular disorder [Not Recovered/Not Resolved]
  - Drug ineffective [Unknown]

NARRATIVE: CASE EVENT DATE: 20210101
